FAERS Safety Report 9764567 (Version 4)
Quarter: 2014Q1

REPORT INFORMATION
  Report Type: Spontaneous
  Country: IT (occurrence: IT)
  Receive Date: 20131217
  Receipt Date: 20140214
  Transmission Date: 20141002
  Serious: Yes (Hospitalization)
  Sender: FDA-Public Use
  Company Number: IT-RANBAXY-2013RR-76202

PATIENT
  Age: 70 Year
  Sex: Female

DRUGS (7)
  1. GABAPENTIN [Suspect]
     Indication: SUICIDE ATTEMPT
     Dosage: 14 DOSAGE UNITS COMPLETE
     Route: 048
     Dates: start: 20131108, end: 20131108
  2. ACETAMOL [Suspect]
     Indication: SUICIDE ATTEMPT
     Dosage: 4 DOSAGE UNITS COMPLETE
     Route: 048
     Dates: start: 20131108, end: 20131108
  3. PATROL [Suspect]
     Indication: SUICIDE ATTEMPT
     Dosage: 7 DOSAGE UNITS COMPLETE
     Route: 048
     Dates: start: 20131108, end: 20131108
  4. PALEXIA [Suspect]
     Indication: SUICIDE ATTEMPT
     Dosage: 9 DOSAGE UNITS COMPLETE
     Route: 048
     Dates: start: 20131108, end: 20131108
  5. RISEDRONATE [Suspect]
     Indication: SUICIDE ATTEMPT
     Dosage: 3 DOSAGE UNITS COMPLETE
     Route: 048
     Dates: start: 20131108, end: 20131108
  6. PINEAL NOTTE [Concomitant]
     Indication: PRODUCT USED FOR UNKNOWN INDICATION
     Dosage: UNK
     Route: 065
  7. GUNA BRAIN [Concomitant]
     Indication: PRODUCT USED FOR UNKNOWN INDICATION
     Dosage: UNK
     Route: 065

REACTIONS (2)
  - Confusional state [Recovered/Resolved]
  - Drug abuse [Recovered/Resolved]
